FAERS Safety Report 6165145-7 (Version None)
Quarter: 2009Q2

REPORT INFORMATION
  Report Type: 
  Country: None (occurrence: None)
  Receive Date: 20090421
  Receipt Date: 20090421
  Transmission Date: 20091009
  Serious: Yes (Hospitalization)
  Sender: FDA-Public Use
  Company Number: None

PATIENT
  Age: 36 Year
  Sex: Female

DRUGS (13)
  1. LETAIRIS [Suspect]
     Indication: PULMONARY HYPERTENSION
     Dosage: 5MG DAILY PO
     Route: 048
     Dates: start: 20090115, end: 20090129
  2. AMIODARONE HYDROCHLORIDE [Suspect]
     Indication: ARRHYTHMIA
     Dosage: 200MG BID PO
     Route: 048
     Dates: end: 20080129
  3. AMIODARONE HYDROCHLORIDE [Suspect]
     Indication: PROPHYLAXIS
     Dosage: 200MG BID PO
     Route: 048
     Dates: end: 20080129
  4. FLOLAN [Concomitant]
  5. WARFARIN [Concomitant]
  6. POTASSIUM CHLORIDE [Concomitant]
  7. FUROSEMIDE [Concomitant]
  8. NEURONTIN [Concomitant]
  9. ZETIA [Concomitant]
  10. LEXAPRO [Concomitant]
  11. LORAZEPAM [Concomitant]
  12. ASMANEX TWISTHALER [Concomitant]
  13. VICODIN [Concomitant]

REACTIONS (2)
  - HYPOXIA [None]
  - LUNG INFILTRATION [None]
